FAERS Safety Report 4992587-5 (Version None)
Quarter: 2006Q1

REPORT INFORMATION
  Report Type: 
  Country: None (occurrence: None)
  Receive Date: 20060315
  Receipt Date: 20050927
  Transmission Date: 20060701
  Serious: Yes (Other)
  Sender: FDA-Public Use
  Company Number: USA0509109264

PATIENT
  Age: 83 Year
  Sex: Female

DRUGS (1)
  1. GEMZAR [Suspect]
     Indication: BILE DUCT CANCER
     Dosage: 1600 MG, INTRAVENOUS
     Route: 042
     Dates: start: 20050817

REACTIONS (1)
  - LIVER FUNCTION TEST ABNORMAL [None]
